FAERS Safety Report 13458319 (Version 1)
Quarter: 2017Q2

REPORT INFORMATION
  Report Type: Spontaneous
  Country: US (occurrence: US)
  Receive Date: 20170419
  Receipt Date: 20170419
  Transmission Date: 20170830
  Serious: Yes (Other)
  Sender: FDA-Public Use
  Company Number: US-BAYER-2017-074730

PATIENT
  Age: 61 Year
  Sex: Female

DRUGS (1)
  1. AVELOX [Suspect]
     Active Substance: MOXIFLOXACIN HYDROCHLORIDE
     Dosage: UNK

REACTIONS (4)
  - Loss of consciousness [None]
  - Vomiting [None]
  - Drug hypersensitivity [None]
  - Nausea [None]

NARRATIVE: CASE EVENT DATE: 20120731
